FAERS Safety Report 17755438 (Version 1)
Quarter: 2020Q2

REPORT INFORMATION
  Report Type: Spontaneous
  Country: US (occurrence: US)
  Receive Date: 20200507
  Receipt Date: 20200507
  Transmission Date: 20200714
  Serious: Yes (Hospitalization, Other)
  Sender: FDA-Public Use
  Company Number: US-SUN PHARMACEUTICAL INDUSTRIES LTD-2020R1-245722

PATIENT
  Age: 59 Year
  Sex: Female

DRUGS (9)
  1. AZITHROMYCIN ANHYDROUS. [Suspect]
     Active Substance: AZITHROMYCIN ANHYDROUS
     Indication: CLOSTRIDIAL INFECTION
     Dosage: UNK
     Route: 065
  2. SULPHAMETHOXAZOLE + TRIMETHOPRIM [Suspect]
     Active Substance: SULFAMETHOXAZOLE\TRIMETHOPRIM
     Indication: CLOSTRIDIAL INFECTION
     Dosage: UNK
     Route: 065
  3. VANCOMYCIN HYDROCHLORIDE. [Suspect]
     Active Substance: VANCOMYCIN HYDROCHLORIDE
     Indication: CLOSTRIDIAL INFECTION
     Dosage: UNK
     Route: 065
  4. ISAVUCONAZOLE [Suspect]
     Active Substance: ISAVUCONAZOLE
     Indication: CLOSTRIDIAL INFECTION
     Dosage: UNK
     Route: 065
  5. MEROPENEM. [Suspect]
     Active Substance: MEROPENEM
     Indication: CLOSTRIDIAL INFECTION
     Dosage: UNK
     Route: 065
  6. CEFEPIME [Suspect]
     Active Substance: CEFEPIME HYDROCHLORIDE
     Indication: CLOSTRIDIAL INFECTION
     Dosage: UNK
     Route: 065
  7. DOXYCYCLINE. [Concomitant]
     Active Substance: DOXYCYCLINE
     Indication: Q FEVER
     Dosage: UNK
     Route: 065
  8. METHYLPREDNISOLONE. [Concomitant]
     Active Substance: METHYLPREDNISOLONE
     Indication: Q FEVER
     Dosage: UNK
     Route: 065
  9. SIROLIMUS. [Concomitant]
     Active Substance: SIROLIMUS
     Indication: Q FEVER
     Dosage: UNK
     Route: 065

REACTIONS (3)
  - Condition aggravated [Unknown]
  - Dysphagia [Unknown]
  - Mouth ulceration [Unknown]
